FAERS Safety Report 22085933 (Version 1)
Quarter: 2023Q1

REPORT INFORMATION
  Report Type: Spontaneous
  Country: US (occurrence: US)
  Receive Date: 20230310
  Receipt Date: 20230310
  Transmission Date: 20230417
  Serious: No
  Sender: FDA-Public Use
  Company Number: US-PFIZER INC-202300100678

PATIENT
  Age: 74 Year
  Sex: Female
  Weight: 58.97 kg

DRUGS (5)
  1. IBRANCE [Suspect]
     Active Substance: PALBOCICLIB
     Indication: Breast cancer metastatic
     Dosage: UNK
     Dates: start: 202207
  2. IBRANCE [Suspect]
     Active Substance: PALBOCICLIB
     Indication: Metastases to bone
  3. FULVESTRANT [Concomitant]
     Active Substance: FULVESTRANT
     Indication: Bone cancer
     Dosage: UNK, EVERY 4 WEEKS
  4. XGEVA [Concomitant]
     Active Substance: DENOSUMAB
     Dosage: UNK, ONCE EVERY THREE MONTHS
  5. SYNTHROID [Concomitant]
     Active Substance: LEVOTHYROXINE SODIUM
     Indication: Thyroid disorder
     Dosage: 100 MG, DAILY, BEFORE MEALS
     Route: 048

REACTIONS (3)
  - Pain of skin [Recovered/Resolved]
  - Full blood count decreased [Unknown]
  - Wrong technique in product usage process [Unknown]

NARRATIVE: CASE EVENT DATE: 20230101
